FAERS Safety Report 5107815-5 (Version None)
Quarter: 2006Q3

REPORT INFORMATION
  Report Type: 
  Country: None (occurrence: None)
  Receive Date: 20060919
  Receipt Date: 20060905
  Transmission Date: 20061208
  Serious: Yes (Death, Hospitalization)
  Sender: FDA-Public Use
  Company Number: US-JNJFOC-20060902485

PATIENT
  Age: 43 Year

DRUGS (3)
  1. ASPIRIN [Suspect]
     Indication: SUICIDE ATTEMPT
     Route: 048
  2. SERTRALINE [Suspect]
     Indication: SUICIDE ATTEMPT
  3. COCAINE [Suspect]
     Indication: SUICIDE ATTEMPT

REACTIONS (1)
  - COMPLETED SUICIDE [None]
